FAERS Safety Report 10082324 (Version 1)
Quarter: 2014Q2

REPORT INFORMATION
  Report Type: Spontaneous
  Country: US (occurrence: None)
  Receive Date: 20140414
  Receipt Date: 20140414
  Transmission Date: 20141212
  Serious: No
  Sender: FDA-Public Use
  Company Number: None

PATIENT
  Age: 6 Year
  Sex: Female
  Weight: 20.87 kg

DRUGS (1)
  1. DEXMETHYLPHENIDATE [Suspect]
     Indication: ATTENTION DEFICIT/HYPERACTIVITY DISORDER
     Route: 048
     Dates: start: 20140412, end: 20140412

REACTIONS (6)
  - Muscle twitching [None]
  - Psychomotor hyperactivity [None]
  - Hallucination [None]
  - Abdominal discomfort [None]
  - Decreased appetite [None]
  - Dry mouth [None]
